FAERS Safety Report 4554209-7 (Version None)
Quarter: 2005Q1

REPORT INFORMATION
  Report Type: 
  Country: None (occurrence: None)
  Receive Date: 20050118
  Receipt Date: 20050107
  Transmission Date: 20050727
  Serious: Yes (Other)
  Sender: FDA-Public Use
  Company Number: PHFR2005GB00504

PATIENT
  Sex: Female

DRUGS (1)
  1. VOLTAROL [Suspect]
     Indication: BREAST CANCER
     Dosage: 50 MG, TID
     Dates: start: 20050105, end: 20050106

REACTIONS (2)
  - CONDITION AGGRAVATED [None]
  - TUMOUR HAEMORRHAGE [None]
